FAERS Safety Report 13516257 (Version 1)
Quarter: 2017Q2

REPORT INFORMATION
  Report Type: Spontaneous
  Country: FR (occurrence: FR)
  Receive Date: 20170505
  Receipt Date: 20170505
  Transmission Date: 20170830
  Serious: Yes (Death, Hospitalization)
  Sender: FDA-Public Use
  Company Number: FR-ASTRAZENECA-2017SE45888

PATIENT
  Age: 13991 Day
  Sex: Male

DRUGS (8)
  1. METHOTREXATE. [Concomitant]
     Active Substance: METHOTREXATE
     Route: 058
  2. NOXAFIL [Concomitant]
     Active Substance: POSACONAZOLE
     Route: 048
  3. ZELITREX [Concomitant]
     Active Substance: VALACYCLOVIR HYDROCHLORIDE
     Indication: INFECTION
     Dosage: 500.0MG UNKNOWN
     Route: 048
  4. BACTRIM [Concomitant]
     Active Substance: SULFAMETHOXAZOLE\TRIMETHOPRIM
     Indication: INFECTION
     Dosage: 0.4286 DF (3 DF, ONCE A WEEK)
     Route: 048
  5. OXYNORM [Concomitant]
     Active Substance: OXYCODONE HYDROCHLORIDE
     Indication: PAIN
     Dosage: THREE TO FOUR IN A DAY
  6. MIRTAZAPINE. [Concomitant]
     Active Substance: MIRTAZAPINE
     Route: 048
  7. ZYVOXID [Concomitant]
     Active Substance: LINEZOLID
     Route: 048
     Dates: start: 20170120, end: 20170203
  8. MERONEM [Suspect]
     Active Substance: MEROPENEM
     Route: 058
     Dates: start: 20170120, end: 20170129

REACTIONS (1)
  - Encephalopathy [Recovered/Resolved]

NARRATIVE: CASE EVENT DATE: 20170129
